FAERS Safety Report 13450549 (Version 2)
Quarter: 2017Q2

REPORT INFORMATION
  Report Type: Spontaneous
  Country: US (occurrence: US)
  Receive Date: 20170418
  Receipt Date: 20170529
  Transmission Date: 20170830
  Serious: Yes (Hospitalization)
  Sender: FDA-Public Use
  Company Number: US-B.I. PHARMACEUTICALS,INC./RIDGEFIELD-2017-BI-021899

PATIENT
  Age: 78 Year
  Sex: Female
  Weight: 108 kg

DRUGS (5)
  1. PRADAXA [Suspect]
     Active Substance: DABIGATRAN ETEXILATE MESYLATE
     Indication: ATRIAL FIBRILLATION
     Route: 048
     Dates: start: 201402
  2. HYDROXYZINE PAMOATE. [Concomitant]
     Active Substance: HYDROXYZINE PAMOATE
     Indication: RASH
     Route: 048
     Dates: start: 20150417, end: 20150422
  3. LIPITOR [Concomitant]
     Active Substance: ATORVASTATIN CALCIUM
     Indication: TYPE V HYPERLIPIDAEMIA
     Route: 048
     Dates: start: 20150414
  4. PRADAXA [Suspect]
     Active Substance: DABIGATRAN ETEXILATE MESYLATE
     Route: 048
     Dates: start: 20150414
  5. HYDROCHLOROTHIAZIDE-VALSARTAN [Concomitant]
     Indication: ESSENTIAL HYPERTENSION
     Dosage: UNIT/DAILY DOSE 25 MG - 160 MG
     Route: 048
     Dates: start: 20150414

REACTIONS (1)
  - Gastrointestinal haemorrhage [Unknown]

NARRATIVE: CASE EVENT DATE: 20150418
